FAERS Safety Report 13755696 (Version 3)
Quarter: 2017Q3

REPORT INFORMATION
  Report Type: Report from Study
  Country: CA (occurrence: CA)
  Receive Date: 20170714
  Receipt Date: 20170719
  Transmission Date: 20171127
  Serious: No
  Sender: FDA-Public Use
  Company Number: PHHY2017CA090671

PATIENT
  Age: 47 Year
  Sex: Female

DRUGS (1)
  1. GILENYA [Suspect]
     Active Substance: FINGOLIMOD HYDROCHLORIDE
     Indication: PRODUCT USED FOR UNKNOWN INDICATION
     Dosage: UNK
     Route: 048
     Dates: start: 20170615

REACTIONS (17)
  - Throat tightness [Unknown]
  - Bronchitis [Unknown]
  - Eye swelling [Unknown]
  - Rash [Unknown]
  - Hypoaesthesia [Unknown]
  - Inappropriate affect [Unknown]
  - Ocular hyperaemia [Unknown]
  - Blepharospasm [Unknown]
  - Peripheral swelling [Unknown]
  - Paraesthesia [Unknown]
  - Pruritus generalised [Unknown]
  - Dyspnoea [Unknown]
  - Headache [Unknown]
  - Limb discomfort [Unknown]
  - Asthenia [Unknown]
  - Pruritus [Unknown]
  - Sleep disorder [Unknown]

NARRATIVE: CASE EVENT DATE: 201706
